FAERS Safety Report 8918130 (Version 1)
Quarter: 2012Q4

REPORT INFORMATION
  Report Type: 
  Country: US (occurrence: US)
  Receive Date: 20121120
  Receipt Date: 20121120
  Transmission Date: 20130627
  Serious: No
  Sender: FDA-Public Use
  Company Number: US-ASTRAZENECA-2012SE21559

PATIENT
  Age: 66 Year
  Sex: Female
  Weight: 88.5 kg

DRUGS (3)
  1. NEXIUM [Suspect]
     Indication: DYSPEPSIA
     Route: 048
  2. SYNTHROID [Concomitant]
     Indication: THYROID DISORDER
  3. CELEXA [Concomitant]
     Indication: MENTAL DISORDER

REACTIONS (3)
  - Gastrooesophageal reflux disease [Unknown]
  - Regurgitation [Unknown]
  - Intentional drug misuse [Unknown]
